FAERS Safety Report 25077240 (Version 4)
Quarter: 2025Q2

REPORT INFORMATION
  Report Type: Spontaneous
  Country: JP (occurrence: JP)
  Receive Date: 20250314
  Receipt Date: 20250522
  Transmission Date: 20250716
  Serious: Yes (Death, Hospitalization)
  Sender: NOVARTIS
  Company Number: JP-002147023-NVSJ2025JP003239

PATIENT
  Sex: Male

DRUGS (8)
  1. LUTATHERA [Suspect]
     Active Substance: LUTETIUM OXODOTREOTIDE LU-177
     Indication: Pancreatic neuroendocrine tumour
     Route: 042
     Dates: start: 20240820
  2. LUTATHERA [Suspect]
     Active Substance: LUTETIUM OXODOTREOTIDE LU-177
     Route: 042
     Dates: start: 20241017
  3. LUTATHERA [Suspect]
     Active Substance: LUTETIUM OXODOTREOTIDE LU-177
     Route: 042
     Dates: start: 20241212
  4. LUTATHERA [Suspect]
     Active Substance: LUTETIUM OXODOTREOTIDE LU-177
     Route: 042
     Dates: start: 20250206, end: 20250206
  5. ARGININE\LYSINE [Suspect]
     Active Substance: ARGININE\LYSINE
     Indication: Product used for unknown indication
     Route: 041
     Dates: start: 20240820
  6. ARGININE\LYSINE [Suspect]
     Active Substance: ARGININE\LYSINE
     Route: 041
     Dates: start: 20241017
  7. ARGININE\LYSINE [Suspect]
     Active Substance: ARGININE\LYSINE
     Route: 041
     Dates: start: 20241212
  8. ARGININE\LYSINE [Suspect]
     Active Substance: ARGININE\LYSINE
     Route: 041
     Dates: start: 20250206, end: 20250206

REACTIONS (3)
  - Pancreatic neuroendocrine tumour [Fatal]
  - Malignant neoplasm progression [Fatal]
  - Tumour lysis syndrome [Fatal]

NARRATIVE: CASE EVENT DATE: 20250301
